FAERS Safety Report 6140228-6 (Version None)
Quarter: 2009Q2

REPORT INFORMATION
  Report Type: 
  Country: None (occurrence: None)
  Receive Date: 20090401
  Receipt Date: 20090323
  Transmission Date: 20091009
  Serious: No
  Sender: FDA-Public Use
  Company Number: US-B.I. PHARMACEUTICALS,INC./RIDGEFIELD-2009-BP-03666BP

PATIENT
  Age: 40 Year
  Sex: Female

DRUGS (4)
  1. ZANTAC 150 [Suspect]
     Indication: ABDOMINAL PAIN UPPER
     Dosage: 300MG
     Route: 048
     Dates: start: 20090323
  2. ADVIR [Concomitant]
     Indication: PAIN
  3. ASCORBIC ACID [Concomitant]
     Indication: VITAMIN C
  4. VITAMIN E [Concomitant]
     Indication: VITAMIN E

REACTIONS (1)
  - ABDOMINAL PAIN UPPER [None]
